FAERS Safety Report 20497367 (Version 2)
Quarter: 2021Q4

REPORT INFORMATION
  Report Type: Report from Study
  Country: GB (occurrence: GB)
  Receive Date: 20220221
  Receipt Date: 20211103
  Transmission Date: 20220303
  Serious: Yes (Hospitalization, Other)
  Sender: FDA-Public Use
  Company Number: GB-BRISTOL-MYERS SQUIBB COMPANY-BMS-2022-023418

PATIENT
  Age: 37 Year
  Sex: Female
  Weight: 58.2 kg

DRUGS (13)
  1. NIVOLUMAB [Suspect]
     Active Substance: NIVOLUMAB
     Indication: Ovarian cancer
     Dosage: 240 MILLIGRAM, 5 CYCLES
     Route: 042
     Dates: start: 20210618, end: 20220114
  2. NIVOLUMAB [Suspect]
     Active Substance: NIVOLUMAB
     Indication: Malignant peritoneal neoplasm
  3. NIVOLUMAB [Suspect]
     Active Substance: NIVOLUMAB
     Indication: Fallopian tube cancer
  4. RUCAPARIB [Suspect]
     Active Substance: RUCAPARIB
     Indication: Ovarian cancer
     Dosage: 400 MILLIGRAM, 5 CYCLES
     Route: 048
     Dates: start: 20210618, end: 20220126
  5. RUCAPARIB [Suspect]
     Active Substance: RUCAPARIB
     Indication: Malignant peritoneal neoplasm
  6. RUCAPARIB [Suspect]
     Active Substance: RUCAPARIB
     Indication: Fallopian tube cancer
  7. IPILIMUMAB [Suspect]
     Active Substance: IPILIMUMAB
     Indication: Ovarian cancer
     Dosage: 65 MG  4 CYCLES
     Route: 042
     Dates: start: 20210618
  8. IPILIMUMAB [Suspect]
     Active Substance: IPILIMUMAB
     Indication: Malignant peritoneal neoplasm
  9. IPILIMUMAB [Suspect]
     Active Substance: IPILIMUMAB
     Indication: Fallopian tube cancer
  10. LORAZEPAM [Concomitant]
     Active Substance: LORAZEPAM
     Indication: Insomnia
     Dosage: 1 MILLIGRAM
     Route: 048
     Dates: start: 20211006
  11. MYCOPHENOLIC ACID [Concomitant]
     Active Substance: MYCOPHENOLIC ACID
     Indication: Adverse event
     Dosage: 500 MILLIGRAM
     Route: 048
     Dates: start: 20220131
  12. CLONAZEPAM [Concomitant]
     Active Substance: CLONAZEPAM
     Indication: Epilepsy
     Dosage: 3.5 MILLIGRAM
     Route: 048
     Dates: start: 20220131
  13. SERTRALINE [Concomitant]
     Active Substance: SERTRALINE HYDROCHLORIDE
     Indication: Depression
     Dosage: 50 MILLIGRAM
     Route: 048
     Dates: start: 20220131

REACTIONS (1)
  - Encephalitis autoimmune [Recovered/Resolved with Sequelae]

NARRATIVE: CASE EVENT DATE: 20220128
